FAERS Safety Report 17388729 (Version 1)
Quarter: 2020Q1

REPORT INFORMATION
  Report Type: Spontaneous
  Country: US (occurrence: US)
  Receive Date: 20200206
  Receipt Date: 20200206
  Transmission Date: 20200409
  Serious: Yes (Hospitalization, Other)
  Sender: FDA-Public Use
  Company Number: US-NOVOPROD-710123

PATIENT
  Age: 73 Year
  Sex: Male

DRUGS (2)
  1. NOVOLOG [Suspect]
     Active Substance: INSULIN ASPART
     Indication: DIABETES MELLITUS INADEQUATE CONTROL
     Dosage: 6 TO 8 TIMES A DAY PRN, THEN TID
     Route: 058
  2. TOUJEO [Concomitant]
     Active Substance: INSULIN GLARGINE
     Indication: DIABETES MELLITUS INADEQUATE CONTROL
     Dosage: IN THE MORNING
     Route: 065

REACTIONS (5)
  - Diabetic hyperglycaemic coma [Recovered/Resolved]
  - Blood glucose increased [Recovered/Resolved]
  - Hip fracture [Not Recovered/Not Resolved]
  - Product quality issue [Unknown]
  - Inappropriate schedule of product administration [Unknown]

NARRATIVE: CASE EVENT DATE: 201706
